FAERS Safety Report 9734169 (Version 3)
Quarter: 2014Q1

REPORT INFORMATION
  Report Type: Spontaneous
  Country: US (occurrence: US)
  Receive Date: 20131205
  Receipt Date: 20140116
  Transmission Date: 20141002
  Serious: Yes (Hospitalization, Other)
  Sender: FDA-Public Use
  Company Number: US-GILEAD-2013-0089311

PATIENT
  Sex: Female

DRUGS (4)
  1. LETAIRIS [Suspect]
     Indication: PULMONARY ARTERIAL HYPERTENSION
     Dosage: 10 MG, QD
     Route: 048
     Dates: start: 20100908
  2. LETAIRIS [Suspect]
     Indication: HEART DISEASE CONGENITAL
  3. VELETRI [Concomitant]
  4. ADCIRCA [Concomitant]

REACTIONS (3)
  - Myocardial infarction [Unknown]
  - Infusion site erythema [Unknown]
  - Infusion site swelling [Unknown]
